FAERS Safety Report 9381822 (Version 1)
Quarter: 2013Q3

REPORT INFORMATION
  Report Type: Spontaneous
  Country: DE (occurrence: DE)
  Receive Date: 20130703
  Receipt Date: 20130703
  Transmission Date: 20140515
  Serious: Yes (Other)
  Sender: FDA-Public Use
  Company Number: DE-TEVA-415109GER

PATIENT
  Age: 0 Year
  Sex: Male

DRUGS (4)
  1. CICLOSPORIN [Suspect]
     Route: 064
  2. METHOTREXAT [Concomitant]
     Route: 064
  3. PREDNISOLON [Concomitant]
     Route: 064
  4. CELESTAN [Concomitant]
     Route: 064

REACTIONS (2)
  - Pancreatic insufficiency [Recovered/Resolved]
  - Motor developmental delay [Unknown]
